FAERS Safety Report 6429355-3 (Version None)
Quarter: 2009Q4

REPORT INFORMATION
  Report Type: 
  Country: None (occurrence: None)
  Receive Date: 20091105
  Receipt Date: 20090414
  Transmission Date: 20100525
  Serious: No
  Sender: FDA-Public Use
  Company Number: US-ABBOTT-09P-163-0568601-00

PATIENT
  Sex: Male
  Weight: 79.904 kg

DRUGS (2)
  1. KALETRA [Suspect]
     Indication: HIV INFECTION
     Dates: start: 20050101
  2. TRIZIVIR [Suspect]
     Indication: HIV INFECTION

REACTIONS (2)
  - FATIGUE [None]
  - NAUSEA [None]
